FAERS Safety Report 5409266-2 (Version None)
Quarter: 2007Q3

REPORT INFORMATION
  Report Type: 
  Country: None (occurrence: None)
  Receive Date: 20070809
  Receipt Date: 20070808
  Transmission Date: 20080115
  Serious: Yes (Other)
  Sender: FDA-Public Use
  Company Number: PHNU2007DE02775

PATIENT
  Age: 47 Year
  Sex: Male

DRUGS (1)
  1. DICLOFENAC [Suspect]
     Indication: MUSCLE SPASMS
     Dates: start: 20070717

REACTIONS (5)
  - IRIS VASCULAR DISORDER [None]
  - ISCHAEMIA [None]
  - LACRIMATION INCREASED [None]
  - PHOTOPHOBIA [None]
  - PUPIL FIXED [None]
